FAERS Safety Report 6055166-7 (Version None)
Quarter: 2009Q1

REPORT INFORMATION
  Report Type: 
  Country: None (occurrence: None)
  Receive Date: 20090128
  Receipt Date: 20090120
  Transmission Date: 20090719
  Serious: Yes (Hospitalization)
  Sender: FDA-Public Use
  Company Number: US-JNJFOC-20090105717

PATIENT
  Sex: Male
  Weight: 79.48 kg

DRUGS (9)
  1. DOXORUBICIN HCL [Suspect]
     Indication: MULTIPLE MYELOMA
     Route: 042
  2. VELCADE [Suspect]
     Indication: MULTIPLE MYELOMA
     Route: 042
  3. DEXAMETHASONE [Suspect]
     Indication: MULTIPLE MYELOMA
     Route: 065
  4. FLUCONAZOLE [Concomitant]
     Route: 048
  5. ACYCLOVIR [Concomitant]
     Route: 048
  6. BACTRIM [Concomitant]
     Dosage: M-T-W
     Route: 048
  7. VITAMIN B6 [Concomitant]
     Route: 048
  8. NEXIUM [Concomitant]
     Route: 048
  9. ATENOLOL [Concomitant]
     Route: 048

REACTIONS (3)
  - ABDOMINAL PAIN [None]
  - PNEUMONIA [None]
  - URINARY RETENTION [None]
